FAERS Safety Report 4839287-X (Version None)
Quarter: 2005Q4

REPORT INFORMATION
  Report Type: 
  Country: None (occurrence: None)
  Receive Date: 20051129
  Receipt Date: 20041123
  Transmission Date: 20060501
  Serious: No
  Sender: FDA-Public Use
  Company Number: US-GLAXOSMITHKLINE-A0535001A

PATIENT
  Sex: Female

DRUGS (5)
  1. WELLBUTRIN SR [Suspect]
     Indication: DEPRESSION
     Dosage: 150MG UNKNOWN
     Route: 048
  2. LEVOXYL [Concomitant]
  3. ATACAND [Concomitant]
  4. EVISTA [Concomitant]
  5. NEXIUM [Concomitant]

REACTIONS (1)
  - APHTHOUS STOMATITIS [None]
